FAERS Safety Report 7391481-2 (Version None)
Quarter: 2011Q2

REPORT INFORMATION
  Report Type: 
  Country: None (occurrence: None)
  Receive Date: 20110404
  Receipt Date: 20100208
  Transmission Date: 20111010
  Serious: No
  Sender: FDA-Public Use
  Company Number: US-BAYER-201013830NA

PATIENT
  Sex: Female
  Weight: 99.545 kg

DRUGS (3)
  1. LEVOTHYROXINE [Concomitant]
  2. AMBIEN [Concomitant]
  3. MIRENA [Suspect]
     Indication: CONTRACEPTION
     Dosage: 20 MCG/24HR, CONT
     Route: 015
     Dates: start: 20100901

REACTIONS (4)
  - BREAST PAIN [None]
  - METRORRHAGIA [None]
  - ABDOMINAL PAIN [None]
  - VAGINAL DISCHARGE [None]
